FAERS Safety Report 18260271 (Version 1)
Quarter: 2020Q3

REPORT INFORMATION
  Report Type: Spontaneous
  Country: DE (occurrence: DE)
  Receive Date: 20200914
  Receipt Date: 20200914
  Transmission Date: 20201103
  Serious: Yes (Death, Hospitalization, Other)
  Sender: FDA-Public Use
  Company Number: DE-AUROBINDO-AUR-APL-2020-024393

PATIENT
  Sex: Male

DRUGS (12)
  1. CLOPIDOGREL [Suspect]
     Active Substance: CLOPIDOGREL BISULFATE
     Indication: ACUTE CORONARY SYNDROME
     Dosage: 75 MILLIGRAM, ONCE A DAY
     Route: 048
     Dates: start: 20200123, end: 20200424
  2. CANDESARTAN 1A PHARMA [Concomitant]
     Active Substance: CANDESARTAN CILEXETIL
     Indication: PRODUCT USED FOR UNKNOWN INDICATION
     Dosage: 20 MILLIGRAM, ONCE A DAY
     Route: 065
  3. ELIQUIS [Suspect]
     Active Substance: APIXABAN
     Indication: CEREBROVASCULAR ACCIDENT PROPHYLAXIS
     Dosage: 0.5 DOSAGE FORM, TWO TIMES A DAY (1 DOSAGE FORM, ONCE A DAY)
     Route: 048
     Dates: start: 20200123
  4. TAMSULOSIN RATIOPHARM [Concomitant]
     Indication: PRODUCT USED FOR UNKNOWN INDICATION
     Dosage: 0.4 MILLIGRAM, ONCE A DAY
     Route: 065
  5. CLOPIDOGREL [Suspect]
     Active Substance: CLOPIDOGREL BISULFATE
     Indication: ACUTE MYOCARDIAL INFARCTION
  6. ALDACTONE [Concomitant]
     Active Substance: SPIRONOLACTONE
     Indication: PRODUCT USED FOR UNKNOWN INDICATION
     Dosage: 25 MILLIGRAM, ONCE A DAY
     Route: 065
  7. ELIQUIS [Suspect]
     Active Substance: APIXABAN
     Indication: ACUTE CORONARY SYNDROME
     Dosage: 5 MILLIGRAM, TWO TIMES A DAY, 10 MG ONCE A DAY
     Route: 065
  8. METOPROLOLSUCCINAT 1 A PHARMA [Concomitant]
     Active Substance: METOPROLOL SUCCINATE
     Indication: PRODUCT USED FOR UNKNOWN INDICATION
     Dosage: 0.5 DOSAGE FORM, TWO TIMES A DAY (1 DOSAGE FORM, ONCE A DAY)
     Route: 048
     Dates: start: 20200421
  9. PANTOPRAZOLE SODIUM. [Concomitant]
     Active Substance: PANTOPRAZOLE SODIUM
     Indication: PRODUCT USED FOR UNKNOWN INDICATION
     Dosage: 40 MILLIGRAM, ONCE A DAY
     Route: 048
  10. VANCOMYCIN EBERTH [Concomitant]
     Dosage: 125 MILLIGRAM, TWO TIMES A DAY (250 MILLIGRAM, ONCE A DAY)
     Route: 065
     Dates: start: 20200317
  11. CANDESARTAN 1A PHARMA [Concomitant]
     Active Substance: CANDESARTAN CILEXETIL
     Dosage: 10 MILLIGRAM, ONCE A DAY
     Route: 065
     Dates: start: 20200420
  12. VANCOMYCIN EBERTH [Concomitant]
     Indication: PRODUCT USED FOR UNKNOWN INDICATION
     Dosage: 125 MILLIGRAM, FOUR TIMES/DAY (500 MILLIGRAM, ONCE A DAY)
     Route: 065
     Dates: start: 20200303, end: 20200310

REACTIONS (7)
  - Gastrointestinal haemorrhage [Unknown]
  - Off label use [Unknown]
  - Acute myocardial infarction [Fatal]
  - Atrial fibrillation [Fatal]
  - Intentional product use issue [Unknown]
  - Diverticulum intestinal haemorrhagic [Fatal]
  - Diverticulum intestinal [Unknown]
